FAERS Safety Report 22884931 (Version 3)
Quarter: 2025Q3

REPORT INFORMATION
  Report Type: Spontaneous
  Country: US (occurrence: US)
  Receive Date: 20230830
  Receipt Date: 20250905
  Transmission Date: 20251021
  Serious: Yes (Other)
  Sender: PFIZER
  Company Number: US-PFIZER INC-2021050525

PATIENT
  Age: 70 Year
  Sex: Female

DRUGS (20)
  1. XELJANZ XR [Suspect]
     Active Substance: TOFACITINIB CITRATE
     Indication: Rheumatoid arthritis
     Dosage: 11 MG, DAILY
     Route: 048
  2. PRILOSEC [Concomitant]
     Active Substance: OMEPRAZOLE MAGNESIUM
  3. ALBUTEROL [Concomitant]
     Active Substance: ALBUTEROL
  4. FOSAMAX [Concomitant]
     Active Substance: ALENDRONATE SODIUM
  5. ASPIRIN [Concomitant]
     Active Substance: ASPIRIN
  6. BACLOFEN [Concomitant]
     Active Substance: BACLOFEN
  7. DICLOFENAC [Concomitant]
     Active Substance: DICLOFENAC
  8. DEPAKOTE [Concomitant]
     Active Substance: DIVALPROEX SODIUM
  9. VIBRAMYCIN [Concomitant]
     Active Substance: DOXYCYCLINE
  10. FLONASE [Concomitant]
     Active Substance: FLUTICASONE PROPIONATE
  11. LOVASTATIN [Concomitant]
     Active Substance: LOVASTATIN
  12. DIFLUCAN [Concomitant]
     Active Substance: FLUCONAZOLE
  13. SYNTHROID [Concomitant]
     Active Substance: LEVOTHYROXINE SODIUM
  14. XALATAN [Concomitant]
     Active Substance: LATANOPROST
  15. LEUCOVORIN [Concomitant]
     Active Substance: LEUCOVORIN\LEUCOVORIN CALCIUM
  16. METHOTREXATE [Concomitant]
     Active Substance: METHOTREXATE
  17. DIOVAL [Concomitant]
  18. EFFEXOR [Concomitant]
     Active Substance: VENLAFAXINE HYDROCHLORIDE
  19. VITAMIN E [Concomitant]
     Active Substance: .ALPHA.-TOCOPHEROL
  20. SINGULAIR [Concomitant]
     Active Substance: MONTELUKAST SODIUM

REACTIONS (3)
  - Endodontic procedure [Unknown]
  - Sinusitis [Unknown]
  - Drug ineffective [Unknown]
